FAERS Safety Report 17037913 (Version 1)
Quarter: 2019Q4

REPORT INFORMATION
  Report Type: Spontaneous
  Country: US (occurrence: US)
  Receive Date: 20191115
  Receipt Date: 20191115
  Transmission Date: 20200122
  Serious: No
  Sender: FDA-Public Use
  Company Number: US-009507513-1911USA005952

PATIENT
  Age: 67 Year
  Sex: Female

DRUGS (8)
  1. PAROXETINE. [Suspect]
     Active Substance: PAROXETINE
     Dosage: 40 MILLIGRAM, QD
  2. CLONAZEPAM. [Suspect]
     Active Substance: CLONAZEPAM
     Dosage: 0.5 MILLIGRAM, HS
  3. SINEMET [Suspect]
     Active Substance: CARBIDOPA\LEVODOPA
     Indication: PARKINSON^S DISEASE
     Dosage: 25 TO 100 MG TWO TABLETS FOUR TIMES A DAY
     Route: 048
  4. DROXIDOPA [Interacting]
     Active Substance: DROXIDOPA
     Dosage: 200 MILLIGRAM, BID
  5. SINEMET CR [Interacting]
     Active Substance: CARBIDOPA\LEVODOPA
     Indication: PARKINSON^S DISEASE
     Dosage: 25 TO 100 MG TWO TABLETS AT BEDTIME
     Route: 048
  6. DROXIDOPA [Interacting]
     Active Substance: DROXIDOPA
     Dosage: 400 MILLIGRAM, BID
  7. DROXIDOPA [Interacting]
     Active Substance: DROXIDOPA
     Indication: ORTHOSTATIC HYPOTENSION
     Dosage: 100 MILLIGRAM, BID
  8. DROXIDOPA [Interacting]
     Active Substance: DROXIDOPA
     Dosage: 200 MILLIGRAM, BID

REACTIONS (4)
  - Anxiety [Unknown]
  - Overdose [Unknown]
  - Memory impairment [Recovered/Resolved]
  - Drug interaction [Unknown]
